FAERS Safety Report 10779009 (Version 1)
Quarter: 2015Q1

REPORT INFORMATION
  Report Type: Spontaneous
  Country: US (occurrence: None)
  Receive Date: 20150205
  Receipt Date: 20150205
  Transmission Date: 20150721
  Serious: Yes (Other)
  Sender: FDA-Public Use
  Company Number: None

PATIENT
  Age: 55 Year
  Sex: Female
  Weight: 160 kg

DRUGS (13)
  1. CALCIUM/VITAMIN D [Concomitant]
     Active Substance: CALCIUM\VITAMIN D
  2. POTASSIUM [Concomitant]
     Active Substance: POTASSIUM
  3. VITAMIN C [Concomitant]
     Active Substance: ASCORBIC ACID
  4. NIFEDIPINE ER OSMOTIC [Concomitant]
  5. ASPIRIN. [Concomitant]
     Active Substance: ASPIRIN
  6. CLARITIN [Suspect]
     Active Substance: LORATADINE
     Indication: NASAL CONGESTION
     Dosage: 10 MG, QTY 30 ONCE DAILY BY MOUTH
     Route: 048
     Dates: start: 20150108, end: 20150114
  7. CLARITIN [Suspect]
     Active Substance: LORATADINE
     Indication: SINUS CONGESTION
     Dosage: 10 MG, QTY 30 ONCE DAILY BY MOUTH
     Route: 048
     Dates: start: 20150108, end: 20150114
  8. NEXIUM [Concomitant]
     Active Substance: ESOMEPRAZOLE MAGNESIUM
  9. ADVAIR HFA [Concomitant]
     Active Substance: FLUTICASONE PROPIONATE\SALMETEROL XINAFOATE
  10. VENTOLIN [Concomitant]
     Active Substance: ALBUTEROL SULFATE
  11. ZORCOR [Concomitant]
  12. CLARITIN [Suspect]
     Active Substance: LORATADINE
     Indication: NASAL DRYNESS
     Dosage: 10 MG, QTY 30 ONCE DAILY BY MOUTH
     Route: 048
     Dates: start: 20150108, end: 20150114
  13. ZANTAC [Concomitant]
     Active Substance: RANITIDINE HYDROCHLORIDE

REACTIONS (4)
  - Dysphagia [None]
  - Throat irritation [None]
  - Pharyngitis streptococcal [None]
  - Throat tightness [None]

NARRATIVE: CASE EVENT DATE: 201501
